FAERS Safety Report 19054293 (Version 1)
Quarter: 2021Q1

REPORT INFORMATION
  Report Type: Report from Study
  Country: CN (occurrence: CN)
  Receive Date: 20210325
  Receipt Date: 20210325
  Transmission Date: 20210420
  Serious: Yes (Hospitalization)
  Sender: FDA-Public Use
  Company Number: CN-ROCHE-2782794

PATIENT
  Age: 61 Year
  Sex: Male
  Weight: 61.3 kg

DRUGS (41)
  1. GLUCOSE [Concomitant]
     Active Substance: DEXTROSE
     Dates: start: 20210304, end: 20210304
  2. POTASSIUM CHLORIDE. [Concomitant]
     Active Substance: POTASSIUM CHLORIDE
     Dates: start: 20210225, end: 20210307
  3. FENTANYL TRANSDERMAL SYSTEM [Concomitant]
     Active Substance: FENTANYL
     Dates: start: 20210225, end: 20210225
  4. FENTANYL TRANSDERMAL SYSTEM [Concomitant]
     Active Substance: FENTANYL
     Dates: start: 20210304, end: 20210304
  5. ALPRAZOLAM. [Concomitant]
     Active Substance: ALPRAZOLAM
     Dates: start: 20210226
  6. TORASEMIDE [Concomitant]
     Active Substance: TORSEMIDE
     Dates: start: 20210304, end: 20210304
  7. SPIRONOLACTONE. [Concomitant]
     Active Substance: SPIRONOLACTONE
     Dates: start: 20210304, end: 20210308
  8. GRANISETRON [Concomitant]
     Active Substance: GRANISETRON
     Indication: VOMITING
     Dates: start: 20210222, end: 20210228
  9. ELEMENE [Concomitant]
     Dates: start: 20210225, end: 20210307
  10. FENTANYL TRANSDERMAL SYSTEM [Concomitant]
     Active Substance: FENTANYL
     Dates: start: 20210307
  11. COMPOUND SODIUM ACETATE RINGER^S [Concomitant]
     Dates: start: 20210302, end: 20210305
  12. METOCLOPRAMIDE DIHYDROCHLORIDE [Concomitant]
     Indication: VOMITING
     Dates: start: 20210222, end: 20210223
  13. SODIUM CHLORIDE. [Concomitant]
     Active Substance: SODIUM CHLORIDE
     Dates: start: 20210222, end: 20210227
  14. SODIUM CHLORIDE. [Concomitant]
     Active Substance: SODIUM CHLORIDE
     Dates: start: 20210222, end: 20210227
  15. COMPOUND AMINO ACID (18AA?V) [Concomitant]
     Active Substance: AMINO ACIDS, SOURCE UNSPECIFIED
     Dates: start: 20210225, end: 20210307
  16. HUMAN ALBUMIN [Concomitant]
     Active Substance: ALBUMIN HUMAN
     Dates: start: 20210305, end: 20210307
  17. FUROSEMIDE. [Concomitant]
     Active Substance: FUROSEMIDE
     Dates: start: 20210305, end: 20210307
  18. GLUCOSE [Concomitant]
     Active Substance: DEXTROSE
     Dates: start: 20210222, end: 20210227
  19. GLUCOSE [Concomitant]
     Active Substance: DEXTROSE
     Dates: start: 20210225, end: 20210307
  20. VITAMIN B6 [Concomitant]
     Active Substance: PYRIDOXINE HYDROCHLORIDE
     Dates: start: 20210222, end: 20210227
  21. MOSAPRIDE CITRATE [Concomitant]
     Active Substance: MOSAPRIDE CITRATE
     Indication: VOMITING
  22. LACTULOSE. [Concomitant]
     Active Substance: LACTULOSE
     Dates: start: 20210304, end: 20210304
  23. LEVOTHYROXINE SODIUM. [Concomitant]
     Active Substance: LEVOTHYROXINE SODIUM
     Dates: start: 20210307
  24. THYMOPENTIN [Concomitant]
     Active Substance: THYMOPENTIN
     Dates: start: 20210225, end: 20210308
  25. POTASSIUM CHLORIDE. [Concomitant]
     Active Substance: POTASSIUM CHLORIDE
     Dates: start: 20210225, end: 20210307
  26. DEXAMETHASONE SODIUM PHOSPHATE. [Concomitant]
     Active Substance: DEXAMETHASONE SODIUM PHOSPHATE
     Dates: start: 20210225, end: 20210307
  27. MANNITOL. [Concomitant]
     Active Substance: MANNITOL
     Dates: start: 20210225, end: 20210307
  28. COMPOUND SODIUM ACETATE RINGER^S [Concomitant]
     Dates: start: 20210226, end: 20210226
  29. LACTULOSE. [Concomitant]
     Active Substance: LACTULOSE
     Dates: start: 20210228, end: 20210228
  30. COMPOUND CHLORHEXIDINE GARGLE [Concomitant]
     Dates: start: 20210302, end: 20210302
  31. ILAPRAZOLE [Concomitant]
     Active Substance: ILAPRAZOLE
     Dates: start: 20210307
  32. MOSAPRIDE CITRATE [Concomitant]
     Active Substance: MOSAPRIDE CITRATE
     Indication: ABDOMINAL PAIN
     Dates: start: 20210215, end: 20210224
  33. PROPACETAMOL HYDROCHLORIDE [Concomitant]
     Active Substance: PROPACETAMOL HYDROCHLORIDE
     Dates: start: 20210225, end: 20210307
  34. OXYCODONE AND ACETAMINOPHEN [Concomitant]
     Active Substance: ACETAMINOPHEN\OXYCODONE HYDROCHLORIDE
     Dates: start: 20210131
  35. RAMOSETRON HYDROCHLORIDE [Concomitant]
     Active Substance: RAMOSETRON HYDROCHLORIDE
     Dates: start: 20210225, end: 20210307
  36. HUMAN ALBUMIN [Concomitant]
     Active Substance: ALBUMIN HUMAN
     Dates: start: 20210302, end: 20210303
  37. ENTRECTINIB [Suspect]
     Active Substance: ENTRECTINIB
     Indication: NEOPLASM
     Dosage: DATE OF LAST DOSE OF ENTRECTINIB: 22/FEB/2021
     Route: 048
     Dates: start: 20210209, end: 20210223
  38. METOCLOPRAMIDE DIHYDROCHLORIDE [Concomitant]
     Dates: start: 20210225, end: 20210227
  39. GLUCOSE [Concomitant]
     Active Substance: DEXTROSE
     Dates: start: 20210225, end: 20210307
  40. ILAPRAZOLE SODIUM [Concomitant]
     Active Substance: ILAPRAZOLE
     Dates: start: 20210225, end: 20210307
  41. ACETYLCYSTEINE. [Concomitant]
     Active Substance: ACETYLCYSTEINE
     Dates: start: 20210225, end: 20210307

REACTIONS (2)
  - Malaise [Recovered/Resolved]
  - Decreased appetite [Recovered/Resolved]

NARRATIVE: CASE EVENT DATE: 20210209
